FAERS Safety Report 8146925-5 (Version None)
Quarter: 2012Q1

REPORT INFORMATION
  Report Type: 
  Country: None (occurrence: None)
  Receive Date: 20120217
  Receipt Date: 20120210
  Transmission Date: 20120608
  Serious: Yes (Other)
  Sender: FDA-Public Use
  Company Number: DE-GILEAD-2012-0050582

PATIENT
  Sex: Female

DRUGS (7)
  1. METHOTREXATE [Concomitant]
     Dosage: UNK
     Route: 048
  2. HYDROXYCHLOROQUINE SULFATE [Concomitant]
     Dosage: UNK
     Route: 048
  3. AMBRISENTAN [Suspect]
     Indication: SKIN ULCER
     Dosage: 5 MG, QD
     Route: 048
     Dates: start: 20111201, end: 20120101
  4. STEROIDS [Concomitant]
  5. AMLODIPINE BESYLATE [Concomitant]
     Route: 048
  6. ARCOXIA [Concomitant]
     Dosage: UNK
     Route: 048
  7. PANTOZOL                           /01263202/ [Concomitant]
     Route: 048

REACTIONS (3)
  - JOINT STIFFNESS [None]
  - HEPATIC ENZYME INCREASED [None]
  - ARTHRALGIA [None]
